FAERS Safety Report 21487725 (Version 1)
Quarter: 2022Q4

REPORT INFORMATION
  Report Type: Spontaneous
  Country: US (occurrence: US)
  Receive Date: 20221020
  Receipt Date: 20221020
  Transmission Date: 20230112
  Serious: No
  Sender: FDA-Public Use
  Company Number: US-ALLERGAN-2213851US

PATIENT
  Sex: Female

DRUGS (3)
  1. LINZESS [Suspect]
     Active Substance: LINACLOTIDE
     Indication: Constipation
     Dosage: 145 MICROGRAM
     Route: 048
     Dates: start: 2021, end: 20220419
  2. FOLIC ACID [Concomitant]
     Active Substance: FOLIC ACID
     Dosage: ONE A DAY
     Route: 048
  3. GABAPENTIN [Concomitant]
     Active Substance: GABAPENTIN
     Indication: Neuralgia

REACTIONS (4)
  - Diverticulitis [Not Recovered/Not Resolved]
  - Inappropriate schedule of product administration [Unknown]
  - Therapeutic response decreased [Unknown]
  - Product physical issue [Unknown]

NARRATIVE: CASE EVENT DATE: 20210101
